FAERS Safety Report 6954648 (Version 2)
Quarter: 2013Q1

REPORT INFORMATION
  Report Type: Spontaneous
  Country: US (occurrence: US)
  Receive Date: 20090327
  Receipt Date: 20130226
  Transmission Date: 20140127
  Serious: Yes (Other)
  Sender: FDA-Public Use
  Company Number: US-ASTRAZENECA-2008UW04236

PATIENT
  Age: 78 Year
  Sex: Male
  Weight: 81.6 kg

DRUGS (9)
  1. ZESTRIL [Suspect]
     Route: 048
     Dates: start: 20080114, end: 20080225
  2. CRESTOR [Suspect]
     Indication: BLOOD CHOLESTEROL INCREASED
     Dosage: 5 MG 4 TIMES PER WEEK
     Route: 048
     Dates: end: 20130215
  3. ACIPHEX [Suspect]
     Indication: GASTROOESOPHAGEAL REFLUX DISEASE
     Route: 065
     Dates: end: 20130215
  4. ARTHOTEC [Concomitant]
     Dates: end: 20080109
  5. ADVAIR [Concomitant]
  6. LIPITOR [Concomitant]
  7. NEXIUM [Concomitant]
     Route: 048
  8. ASA [Concomitant]
  9. PLAVIX [Concomitant]
     Indication: STENT PLACEMENT
     Dosage: 75 MG TWO TIMES IN A WEEK

REACTIONS (13)
  - Ventricular extrasystoles [Not Recovered/Not Resolved]
  - Heart rate decreased [Not Recovered/Not Resolved]
  - Sleep apnoea syndrome [Unknown]
  - Dysphonia [Unknown]
  - Mental impairment [Unknown]
  - Muscle spasms [Unknown]
  - Cough [Unknown]
  - Fatigue [Unknown]
  - Myalgia [Recovering/Resolving]
  - Arthralgia [Recovering/Resolving]
  - Headache [Recovering/Resolving]
  - Off label use [Unknown]
  - Intentional drug misuse [Unknown]
